FAERS Safety Report 15508858 (Version 1)
Quarter: 2018Q4

REPORT INFORMATION
  Report Type: Spontaneous
  Country: US (occurrence: US)
  Receive Date: 20181016
  Receipt Date: 20181016
  Transmission Date: 20190205
  Serious: Yes (Disabling)
  Sender: FDA-Public Use
  Company Number: None

PATIENT
  Age: 73 Year
  Sex: Male
  Weight: 115.2 kg

DRUGS (1)
  1. ORABLOC [Suspect]
     Active Substance: ARTICAINE HYDROCHLORIDE\EPINEPHRINE BITARTRATE
     Indication: DENTAL LOCAL ANAESTHESIA
     Dosage: ?          OTHER STRENGTH:UNKNOWN;QUANTITY:4 INJECTION(S);OTHER FREQUENCY:FOR THIS SURGERY;?
     Route: 030
     Dates: start: 20180904, end: 20180904

REACTIONS (3)
  - Hypoaesthesia [None]
  - Drug effect prolonged [None]
  - Paraesthesia [None]

NARRATIVE: CASE EVENT DATE: 20180904
